FAERS Safety Report 8568211-1 (Version None)
Quarter: 2012Q3

REPORT INFORMATION
  Report Type: 
  Country: None (occurrence: None)
  Receive Date: 20120803
  Receipt Date: 20120720
  Transmission Date: 20120928
  Serious: No
  Sender: FDA-Public Use
  Company Number: US-ABBOTT-12P-163-0958738-00

PATIENT
  Sex: Female
  Weight: 68.1 kg

DRUGS (4)
  1. NIASPAN [Suspect]
     Indication: LOW DENSITY LIPOPROTEIN DECREASED
     Dosage: 500MG, AT NIGHT
     Route: 048
     Dates: start: 20090101
  2. LAMOTRIGINE [Suspect]
     Indication: DEPRESSION
     Dates: start: 20120404
  3. ZOCOR [Concomitant]
     Indication: LOW DENSITY LIPOPROTEIN DECREASED
  4. LAMOTRIGINE [Suspect]
     Dates: end: 20120403

REACTIONS (5)
  - ANXIETY [None]
  - ERYTHEMA [None]
  - PRURITUS [None]
  - FLUSHING [None]
  - PALPITATIONS [None]
